FAERS Safety Report 7953169-6 (Version None)
Quarter: 2011Q4

REPORT INFORMATION
  Report Type: 
  Country: None (occurrence: None)
  Receive Date: 20111201
  Receipt Date: 20111121
  Transmission Date: 20120403
  Serious: Yes (Other)
  Sender: FDA-Public Use
  Company Number: US-ROCHE-1015240

PATIENT

DRUGS (1)
  1. AVASTIN [Suspect]
     Indication: GLIOMA
     Dosage: 28 DAY CYCLE.

REACTIONS (11)
  - PROTEINURIA [None]
  - HYPOPHOSPHATAEMIA [None]
  - HEADACHE [None]
  - PALMAR-PLANTAR ERYTHRODYSAESTHESIA SYNDROME [None]
  - HYPERTENSION [None]
  - RETINOPATHY [None]
  - RASH [None]
  - EMBOLISM [None]
  - HYPONATRAEMIA [None]
  - SKIN EXFOLIATION [None]
  - HYPERURICAEMIA [None]
